FAERS Safety Report 14948944 (Version 1)
Quarter: 2018Q2

REPORT INFORMATION
  Report Type: Spontaneous
  Country: US (occurrence: US)
  Receive Date: 20180529
  Receipt Date: 20180529
  Transmission Date: 20180711
  Serious: No
  Sender: FDA-Public Use
  Company Number: US-GLAXOSMITHKLINE-US2018091561

PATIENT
  Sex: Male

DRUGS (3)
  1. BREO ELLIPTA [Suspect]
     Active Substance: FLUTICASONE FUROATE\VILANTEROL TRIFENATATE
     Indication: BRONCHIECTASIS
     Dosage: 1 PUFF(S), QD
     Route: 055
     Dates: start: 2017
  2. AZITHROMYCIN ANHYDROUS. [Concomitant]
     Active Substance: AZITHROMYCIN ANHYDROUS
     Dosage: UNK, PRN
  3. PREDNISONE. [Concomitant]
     Active Substance: PREDNISONE
     Dosage: UNK, PRN

REACTIONS (2)
  - Drug ineffective for unapproved indication [Recovered/Resolved]
  - Product use in unapproved indication [Not Recovered/Not Resolved]

NARRATIVE: CASE EVENT DATE: 2017
